FAERS Safety Report 5127359-4 (Version None)
Quarter: 2006Q4

REPORT INFORMATION
  Report Type: 
  Country: None (occurrence: None)
  Receive Date: 20061010
  Receipt Date: 20061002
  Transmission Date: 20070319
  Serious: Yes (Other)
  Sender: FDA-Public Use
  Company Number: B0440605A

PATIENT
  Age: 24 Year
  Sex: Female

DRUGS (1)
  1. VENTOLIN [Suspect]
     Indication: PREMATURE LABOUR
     Dosage: 1 MG/HR

REACTIONS (2)
  - DIABETIC KETOACIDOSIS [None]
  - SOMNOLENCE [None]
